FAERS Safety Report 22205533 (Version 1)
Quarter: 2023Q2

REPORT INFORMATION
  Report Type: Other
  Country: CA (occurrence: CA)
  Receive Date: 20230413
  Receipt Date: 20230413
  Transmission Date: 20230722
  Serious: Yes (Other)
  Sender: FDA-Public Use
  Company Number: CA-PFIZER INC-202300152182

PATIENT
  Age: 23 Year
  Sex: Female

DRUGS (3)
  1. CEFTRIAXONE SODIUM [Suspect]
     Active Substance: CEFTRIAXONE SODIUM
     Indication: Perihepatitis
     Dosage: UNK
     Route: 042
  2. DOXYCYCLINE HYCLATE [Suspect]
     Active Substance: DOXYCYCLINE HYCLATE
     Indication: Perihepatitis
     Dosage: UNK
     Route: 048
  3. METRONIDAZOLE [Suspect]
     Active Substance: METRONIDAZOLE
     Indication: Perihepatitis
     Dosage: UNK
     Route: 042

REACTIONS (2)
  - Perihepatitis [Recovered/Resolved]
  - Vomiting [Recovered/Resolved]
